FAERS Safety Report 10970414 (Version 1)
Quarter: 2015Q1

REPORT INFORMATION
  Report Type: Spontaneous
  Country: US (occurrence: US)
  Receive Date: 20150331
  Receipt Date: 20150331
  Transmission Date: 20150721
  Serious: Yes (Other)
  Sender: FDA-Public Use
  Company Number: US-BAYER-2015-070976

PATIENT
  Sex: Female

DRUGS (2)
  1. MIRENA [Suspect]
     Active Substance: LEVONORGESTREL
     Indication: MENORRHAGIA
     Dosage: 20 MCG/24HR, CONT
     Route: 015
     Dates: start: 200902, end: 201402
  2. MIRENA [Suspect]
     Active Substance: LEVONORGESTREL
     Indication: MENORRHAGIA
     Dosage: 20 MCG/24HR, CONT
     Route: 015
     Dates: start: 201408

REACTIONS (9)
  - Genital haemorrhage [None]
  - Feeling hot [Recovered/Resolved]
  - Nerve compression [Recovered/Resolved]
  - Genital haemorrhage [None]
  - Vaginal discharge [None]
  - Amenorrhoea [None]
  - Vaginal discharge [Not Recovered/Not Resolved]
  - Blood pressure abnormal [None]
  - Feeling cold [Recovered/Resolved]

NARRATIVE: CASE EVENT DATE: 2009
